FAERS Safety Report 5071565-4 (Version None)
Quarter: 2006Q3

REPORT INFORMATION
  Report Type: 
  Country: None (occurrence: None)
  Receive Date: 20060804
  Receipt Date: 20060726
  Transmission Date: 20061208
  Serious: Yes (Other)
  Sender: FDA-Public Use
  Company Number: PHFR2006GB02345

PATIENT
  Sex: Female

DRUGS (1)
  1. GLEEVEC [Suspect]

REACTIONS (2)
  - GASTRECTOMY [None]
  - NAUSEA [None]
